FAERS Safety Report 11124887 (Version 1)
Quarter: 2015Q2

REPORT INFORMATION
  Report Type: Spontaneous
  Country: US (occurrence: None)
  Receive Date: 20150519
  Receipt Date: 20150519
  Transmission Date: 20150821
  Serious: Yes (Hospitalization)
  Sender: FDA-Public Use
  Company Number: None

PATIENT
  Age: 59 Year
  Sex: Male
  Weight: 79.4 kg

DRUGS (3)
  1. 5-FLUOROURACIL [Suspect]
     Active Substance: FLUOROURACIL
     Indication: GASTRIC CANCER
     Route: 042
     Dates: start: 20150427, end: 20150501
  2. LEUCOVORIN [Concomitant]
     Active Substance: LEUCOVORIN
  3. LOPERAMIDE [Concomitant]
     Active Substance: LOPERAMIDE

REACTIONS (5)
  - Mucosal inflammation [None]
  - Tachycardia [None]
  - Diarrhoea [None]
  - Dehydration [None]
  - Hypotension [None]

NARRATIVE: CASE EVENT DATE: 20150509
